FAERS Safety Report 5530939-5 (Version None)
Quarter: 2007Q4

REPORT INFORMATION
  Report Type: 
  Country: None (occurrence: None)
  Receive Date: 20071130
  Receipt Date: 20071122
  Transmission Date: 20080405
  Serious: Yes (Hospitalization, Other)
  Sender: FDA-Public Use
  Company Number: FR-BAYER-200717162GPV

PATIENT
  Age: 36 Year
  Sex: Female

DRUGS (5)
  1. MIRENA [Suspect]
     Indication: CONTRACEPTION
     Dosage: TOTAL DAILY DOSE: 20 ?G/D
     Route: 015
     Dates: start: 20060101, end: 20071101
  2. MIRENA [Suspect]
     Dosage: TOTAL DAILY DOSE: 20 ?G/D
     Route: 015
     Dates: start: 20010101, end: 20060101
  3. ZOLOFT [Concomitant]
     Indication: DEPRESSION
  4. LYSANXIA [Concomitant]
     Indication: ANXIOLYTIC THERAPY
  5. ANXIOLYTIC (NOT SPECIFIED) [Concomitant]

REACTIONS (4)
  - ANXIETY [None]
  - DEPRESSION [None]
  - HALLUCINATION [None]
  - PERSECUTORY DELUSION [None]
